FAERS Safety Report 22248094 (Version 1)
Quarter: 2023Q2

REPORT INFORMATION
  Report Type: Spontaneous
  Country: US (occurrence: US)
  Receive Date: 20230425
  Receipt Date: 20230425
  Transmission Date: 20230722
  Serious: Yes (Hospitalization)
  Sender: FDA-Public Use
  Company Number: US-STRIDES ARCOLAB LIMITED-2022SP017212

PATIENT
  Age: 86 Year
  Sex: Female

DRUGS (17)
  1. LEVETIRACETAM [Suspect]
     Active Substance: LEVETIRACETAM
     Indication: Status epilepticus
     Dosage: UNK, LOADS
     Route: 065
  2. LEVETIRACETAM [Suspect]
     Active Substance: LEVETIRACETAM
     Dosage: 500 MILLIGRAM, BID, MAINTAINED ON 500 MG TWICE A DAY WITH 500 MG AFTER HEMODIALYSIS
     Route: 065
  3. LORAZEPAM [Suspect]
     Active Substance: LORAZEPAM
     Indication: Status epilepticus
     Dosage: UNK
     Route: 065
  4. CEFEPIME [Concomitant]
     Active Substance: CEFEPIME HYDROCHLORIDE
     Indication: Escherichia infection
     Dosage: 2 G IV EVERY 48 H RENALLY DOSED FOR 1 DAY
     Route: 042
  5. CEFEPIME [Concomitant]
     Active Substance: CEFEPIME HYDROCHLORIDE
     Dosage: 1 G IV EVERY 24 H RENALLY DOSED
     Route: 042
  6. CEFEPIME [Concomitant]
     Active Substance: CEFEPIME HYDROCHLORIDE
     Dosage: 2 G IV EVERY 48 H RENALLY DOSED AFTER HEMODIALYSIS
     Route: 042
  7. MEROPENEM [Concomitant]
     Active Substance: MEROPENEM
     Indication: Escherichia infection
     Dosage: 500 MG, EVERY 24 H FOR 3 DAYS
     Route: 065
  8. MEROPENEM [Concomitant]
     Active Substance: MEROPENEM
     Dosage: 500 MG, EVERY 24 H FOR 5 DAYS
     Route: 065
  9. ACETAMINOPHEN [Concomitant]
     Active Substance: ACETAMINOPHEN
     Indication: Product used for unknown indication
     Dosage: 650 MG, PRN, EVERY 4 H AS NEEDED
     Route: 065
  10. CARVEDILOL [Concomitant]
     Active Substance: CARVEDILOL
     Indication: Product used for unknown indication
     Dosage: 3.125 MG, BID
     Route: 065
  11. PANTOPRAZOLE [Concomitant]
     Active Substance: PANTOPRAZOLE
     Indication: Product used for unknown indication
     Dosage: 40 MG, EVERY DAY
     Route: 065
  12. PRAVASTATIN [Concomitant]
     Active Substance: PRAVASTATIN
     Indication: Product used for unknown indication
     Dosage: 10 MG, EVERY NIGHT AT BED TIME
     Route: 065
  13. PRAVASTATIN [Concomitant]
     Active Substance: PRAVASTATIN
     Dosage: 20 MG, EVERY NIGHT AT BED TIME
     Route: 065
  14. POLYETHYLENE GLYCOL 3350 [Concomitant]
     Active Substance: POLYETHYLENE GLYCOL 3350
     Indication: Product used for unknown indication
     Dosage: 17 G, BID, TWICE A DAY
     Route: 065
  15. HERBALS\SENNOSIDES [Concomitant]
     Active Substance: HERBALS\SENNOSIDES
     Indication: Product used for unknown indication
     Dosage: 17.2 MG, BID, TWICE A DAY
     Route: 065
  16. ALBUTEROL\IPRATROPIUM [Concomitant]
     Active Substance: ALBUTEROL\IPRATROPIUM
     Indication: Product used for unknown indication
     Dosage: UNK, EVERY 6 HRS, AS NEEDED
     Route: 065
  17. PIPERACILLIN SODIUM\TAZOBACTAM SODIUM [Concomitant]
     Active Substance: PIPERACILLIN SODIUM\TAZOBACTAM SODIUM
     Indication: Escherichia infection
     Dosage: UNK
     Route: 065

REACTIONS (1)
  - Therapy partial responder [Unknown]
